FAERS Safety Report 5843968-9 (Version None)
Quarter: 2008Q3

REPORT INFORMATION
  Report Type: 
  Country: None (occurrence: None)
  Receive Date: 20080813
  Receipt Date: 20080811
  Transmission Date: 20090109
  Serious: Yes (Hospitalization)
  Sender: FDA-Public Use
  Company Number: US-ASTRAZENECA-2008UW15793

PATIENT
  Age: 81 Year
  Sex: Female
  Weight: 27.2 kg

DRUGS (8)
  1. SEROQUEL [Suspect]
     Indication: CONFUSIONAL STATE
     Route: 048
     Dates: start: 20080723
  2. SEROQUEL [Suspect]
     Indication: HALLUCINATION
     Route: 048
     Dates: start: 20080723
  3. SEROQUEL [Suspect]
     Route: 048
  4. SEROQUEL [Suspect]
     Route: 048
  5. SINEMET [Concomitant]
     Indication: DEMENTIA
  6. BACTRIM [Concomitant]
     Indication: URINARY TRACT INFECTION
  7. MORPHINE [Concomitant]
  8. TOPROL-XL [Concomitant]
     Indication: BLOOD PRESSURE ABNORMAL
     Route: 048

REACTIONS (2)
  - HYPOTENSION [None]
  - PNEUMONIA ASPIRATION [None]
